FAERS Safety Report 9644262 (Version 4)
Quarter: 2014Q2

REPORT INFORMATION
  Report Type: Spontaneous
  Country: JP (occurrence: JP)
  Receive Date: 20131025
  Receipt Date: 20140402
  Transmission Date: 20141212
  Serious: Yes (Hospitalization)
  Sender: FDA-Public Use
  Company Number: JP-PFIZER INC-2013255121

PATIENT
  Age: 79 Year
  Sex: Female

DRUGS (7)
  1. ANCARON [Suspect]
     Indication: VENTRICULAR TACHYCARDIA
     Dosage: 100 MG, 2X/DAY
     Route: 048
     Dates: start: 20110511, end: 20110513
  2. ANCARON [Suspect]
     Dosage: 100 MG, DAILY
     Route: 048
     Dates: start: 20110514, end: 20110516
  3. ANCARON [Suspect]
     Dosage: 100 MG, UNK
     Route: 048
  4. SOLIFENACIN SUCCINATE [Suspect]
     Indication: STRESS URINARY INCONTINENCE
     Dosage: 5 MG, DAILY
     Route: 065
  5. SOLIFENACIN SUCCINATE [Suspect]
     Dosage: 10 MG, DAILY
     Route: 065
  6. CLENBUTEROL HYDROCHLORIDE [Suspect]
     Indication: STRESS URINARY INCONTINENCE
     Dosage: 20 UG, DAILY
     Route: 065
  7. CLENBUTEROL HYDROCHLORIDE [Suspect]
     Dosage: 40 UG, DAILY
     Route: 065

REACTIONS (2)
  - Sick sinus syndrome [Recovering/Resolving]
  - Torsade de pointes [Recovered/Resolved]
